FAERS Safety Report 10081798 (Version 1)
Quarter: 2014Q2

REPORT INFORMATION
  Report Type: Spontaneous
  Country: BR (occurrence: BR)
  Receive Date: 20140416
  Receipt Date: 20140416
  Transmission Date: 20141212
  Serious: Yes (Other)
  Sender: FDA-Public Use
  Company Number: PHHY2014BR043471

PATIENT
  Age: 73 Year
  Sex: Female

DRUGS (7)
  1. ZILEDON [Suspect]
     Indication: DEMENTIA ALZHEIMER^S TYPE
     Dosage: 5 MG, QD
     Route: 048
  2. ZILEDON [Suspect]
     Dosage: 10 MG, UNK
     Route: 048
  3. ALLOPURINOL [Concomitant]
     Dosage: UNK
  4. PANTOPRAZOLE [Concomitant]
     Dosage: UNK
  5. ROSUVASTATIN [Concomitant]
     Dosage: UNK
  6. PURAN T4 [Concomitant]
     Dosage: UNK
  7. ASSERT [Concomitant]
     Dosage: UNK

REACTIONS (5)
  - Malaise [Unknown]
  - Back pain [Unknown]
  - Fall [Unknown]
  - Weight decreased [Unknown]
  - Headache [Unknown]
